FAERS Safety Report 7064075-6 (Version None)
Quarter: 2010Q4

REPORT INFORMATION
  Report Type: 
  Country: None (occurrence: None)
  Receive Date: 20101027
  Receipt Date: 20101021
  Transmission Date: 20110411
  Serious: Yes (Death)
  Sender: FDA-Public Use
  Company Number: US-SHIRE-SPV1-2010-01834

PATIENT
  Age: 14 Year
  Sex: Male

DRUGS (12)
  1. VYVANSE [Suspect]
     Indication: PRODUCT USED FOR UNKNOWN INDICATION
     Dosage: UNK, UNKNOWN
     Route: 065
  2. QUETIAPINE [Suspect]
     Indication: PRODUCT USED FOR UNKNOWN INDICATION
     Dosage: UNK, UNKNOWN
     Route: 065
  3. SERTRALINE HYDROCHLORIDE [Suspect]
     Indication: PRODUCT USED FOR UNKNOWN INDICATION
     Dosage: UNK, UNKNOWN
     Route: 065
  4. VALPROIC ACID [Suspect]
     Indication: PRODUCT USED FOR UNKNOWN INDICATION
     Dosage: UNK, UNKNOWN
     Route: 065
  5. CLONIDINE [Suspect]
     Indication: PRODUCT USED FOR UNKNOWN INDICATION
     Dosage: UNK, UNKNOWN
     Route: 065
  6. ARIPIPRAZOLE [Suspect]
     Indication: PRODUCT USED FOR UNKNOWN INDICATION
     Dosage: UNK, UNKNOWN
     Route: 045
  7. DIPHENHYDRAMINE HCL [Suspect]
     Indication: PRODUCT USED FOR UNKNOWN INDICATION
     Dosage: UNK, UNKNOWN
     Route: 065
  8. MELOXICAM [Suspect]
     Indication: PRODUCT USED FOR UNKNOWN INDICATION
     Dosage: UNK, UNKNOWN
     Route: 065
  9. APAP WITH CODEINE [Suspect]
     Indication: PRODUCT USED FOR UNKNOWN INDICATION
     Dosage: 2 UNKNOWN MG DOSES
     Route: 048
     Dates: start: 20100308, end: 20100308
  10. APAP WITH CODEINE [Suspect]
     Dosage: 3 UNKNOWN MG DOSES
     Route: 048
     Dates: start: 20100307, end: 20100307
  11. APAP WITH CODEINE [Suspect]
     Dosage: 1 UNKNOWN MG DOSE
     Route: 048
     Dates: start: 20100306, end: 20100306
  12. PENICILLIN [Suspect]
     Indication: PRODUCT USED FOR UNKNOWN INDICATION
     Dosage: UNK, UNKNOWN
     Route: 065

REACTIONS (18)
  - ANAPHYLACTIC REACTION [None]
  - APNOEA [None]
  - BIPOLAR DISORDER [None]
  - BORDERLINE PERSONALITY DISORDER [None]
  - CEREBRAL ISCHAEMIA [None]
  - CUSHINGOID [None]
  - DEATH [None]
  - DEVELOPMENTAL DELAY [None]
  - ENCEPHALOPATHY [None]
  - HEADACHE [None]
  - HEPATOSPLENOMEGALY [None]
  - LEARNING DISORDER [None]
  - MOUTH ULCERATION [None]
  - PULMONARY OEDEMA [None]
  - PYREXIA [None]
  - SNORING [None]
  - TRYPTASE INCREASED [None]
  - UNRESPONSIVE TO STIMULI [None]
